FAERS Safety Report 20677537 (Version 3)
Quarter: 2022Q4

REPORT INFORMATION
  Report Type: Report from Study
  Country: CL (occurrence: CL)
  Receive Date: 20220406
  Receipt Date: 20221011
  Transmission Date: 20230112
  Serious: No
  Sender: FDA-Public Use
  Company Number: CL-NOVARTISPH-NVSC2022CL076620

PATIENT
  Sex: Female
  Weight: 44 kg

DRUGS (1)
  1. OMNITROPE [Suspect]
     Active Substance: SOMATROPIN
     Indication: Growth retardation
     Dosage: 1.7 MG, QD, (10MG/3.00 IU)
     Route: 058
     Dates: start: 20210511, end: 20220115

REACTIONS (2)
  - Arthropathy [Unknown]
  - Drug effect less than expected [Unknown]
